FAERS Safety Report 21208356 (Version 2)
Quarter: 2022Q3

REPORT INFORMATION
  Report Type: Spontaneous
  Country: FR (occurrence: FR)
  Receive Date: 20220812
  Receipt Date: 20220914
  Transmission Date: 20221027
  Serious: Yes (Hospitalization)
  Sender: FDA-Public Use
  Company Number: None

PATIENT
  Age: 6 Year
  Sex: Female

DRUGS (2)
  1. TEMOZOLOMIDE [Suspect]
     Active Substance: TEMOZOLOMIDE
     Indication: Malignant glioma
     Dosage: 60 MILLIGRAM, QD
     Route: 048
     Dates: start: 20220413, end: 20220719
  2. OPDIVO [Suspect]
     Active Substance: NIVOLUMAB
     Indication: Malignant glioma
     Dosage: 124 MILLIGRAM, ONCE (1 TOTAL)
     Route: 042
     Dates: start: 20220413, end: 20220427

REACTIONS (2)
  - Immune system disorder [Recovered/Resolved]
  - Pyrexia [Recovered/Resolved]

NARRATIVE: CASE EVENT DATE: 20220416
